FAERS Safety Report 22066903 (Version 1)
Quarter: 2023Q1

REPORT INFORMATION
  Report Type: Report from Study
  Country: JP (occurrence: JP)
  Receive Date: 20230306
  Receipt Date: 20230306
  Transmission Date: 20230417
  Serious: Yes (Hospitalization)
  Sender: FDA-Public Use
  Company Number: JP-002147023-PHJP2016JP016531

PATIENT
  Age: 75 Year
  Sex: Male
  Weight: 57.2 kg

DRUGS (15)
  1. UNSPECIFIED INGREDIENT [Suspect]
     Active Substance: UNSPECIFIED INGREDIENT
     Indication: Diffuse large B-cell lymphoma
     Dosage: NO TREATMENT
     Route: 065
  2. ETOPOSIDE [Suspect]
     Active Substance: ETOPOSIDE
     Indication: Product used for unknown indication
     Dosage: 100 MG, UNK
     Route: 065
     Dates: start: 20160531, end: 20160602
  3. ORGADRONE [Suspect]
     Active Substance: DEXAMETHASONE SODIUM PHOSPHATE
     Indication: Product used for unknown indication
     Dosage: 33 MG, UNK
     Route: 065
     Dates: start: 20160531, end: 20160602
  4. CYCLOPHOSPHAMIDE [Suspect]
     Active Substance: CYCLOPHOSPHAMIDE
     Indication: Product used for unknown indication
     Dosage: 1200 MG, UNK
     Route: 065
     Dates: start: 20160531, end: 20160602
  5. CYTARABINE [Suspect]
     Active Substance: CYTARABINE
     Indication: Product used for unknown indication
     Dosage: 2000 MG, UNK
     Route: 065
     Dates: start: 20160531, end: 20160602
  6. ELIQUIS [Concomitant]
     Active Substance: APIXABAN
     Indication: Thrombosis
     Dosage: 1 MG, QD
     Route: 048
     Dates: start: 20160601
  7. FLAGYL [Concomitant]
     Active Substance: METRONIDAZOLE\METRONIDAZOLE HYDROCHLORIDE
     Indication: Pseudomembranous colitis
     Dosage: 500 MG, TID
     Route: 048
     Dates: start: 20160606
  8. VIDARABINE [Concomitant]
     Active Substance: VIDARABINE
     Indication: Oral herpes
     Dosage: APPROPRIATE DOSE
     Route: 062
     Dates: start: 20160613
  9. FLUCONAZOLE [Concomitant]
     Active Substance: FLUCONAZOLE
     Indication: Infection prophylaxis
     Dosage: 200 MG, QD
     Route: 048
     Dates: start: 20160607, end: 20160610
  10. LEVOFLOXACIN [Concomitant]
     Active Substance: LEVOFLOXACIN
     Indication: Prophylaxis
     Dosage: 500 MG, QD
     Route: 048
     Dates: start: 20160607, end: 20160609
  11. LENOGRASTIM [Concomitant]
     Active Substance: LENOGRASTIM
     Indication: Neutrophil count decreased
     Dosage: 100 UG, QD
     Route: 058
     Dates: start: 20160606
  12. MAXIPIME [Concomitant]
     Active Substance: CEFEPIME HYDROCHLORIDE
     Indication: Febrile neutropenia
     Dosage: 1 G, BID
     Route: 058
     Dates: start: 20160609, end: 20160612
  13. MICAFUNGIN SODIUM [Concomitant]
     Active Substance: MICAFUNGIN SODIUM
     Indication: Infection prophylaxis
     Dosage: 150 MG, QD
     Route: 058
     Dates: start: 20160610, end: 20160616
  14. MICAFUNGIN SODIUM [Concomitant]
     Active Substance: MICAFUNGIN SODIUM
     Indication: Sepsis
  15. ESOMEPRAZOLE MAGNESIUM [Concomitant]
     Active Substance: ESOMEPRAZOLE MAGNESIUM
     Indication: Prophylaxis
     Dosage: 20 MG, QD
     Route: 048
     Dates: start: 20160531

REACTIONS (1)
  - Sepsis [Recovered/Resolved]

NARRATIVE: CASE EVENT DATE: 20160612
